FAERS Safety Report 5106248-5 (Version None)
Quarter: 2006Q3

REPORT INFORMATION
  Report Type: 
  Country: None (occurrence: None)
  Receive Date: 20060918
  Receipt Date: 20040923
  Transmission Date: 20061208
  Serious: Yes (Other)
  Sender: FDA-Public Use
  Company Number: PHBS2004CA12741

PATIENT
  Age: 43 Year
  Sex: Male

DRUGS (4)
  1. TEGRETOL [Suspect]
     Indication: EPILEPSY
     Dosage: 200 MG, BID
     Route: 048
  2. TEGRETOL [Suspect]
     Dosage: 200 MG, BID
  3. TEGRETOL [Suspect]
     Dosage: 600 MG, QD
  4. ASPIRIN [Concomitant]
     Dosage: UNK, PRN

REACTIONS (4)
  - DRUG INEFFECTIVE [None]
  - EPILEPSY [None]
  - GLAUCOMA [None]
  - GRAND MAL CONVULSION [None]
